FAERS Safety Report 15814545 (Version 1)
Quarter: 2019Q1

REPORT INFORMATION
  Report Type: Spontaneous
  Country: CN (occurrence: CN)
  Receive Date: 20190111
  Receipt Date: 20190111
  Transmission Date: 20190417
  Serious: Yes (Other)
  Sender: FDA-Public Use
  Company Number: CN-009507513-1901CHN001849

PATIENT
  Age: 59 Year
  Sex: Male
  Weight: 60 kg

DRUGS (4)
  1. BETAMETHASONE SODIUM PHOSPHATE [Suspect]
     Active Substance: BETAMETHASONE SODIUM PHOSPHATE
     Indication: LUMBAR SPINAL STENOSIS
     Dosage: 7 MILLIGRAM, QD
     Route: 008
     Dates: start: 20180308, end: 20180308
  2. LIDOCAINE HYDROCHLORIDE. [Suspect]
     Active Substance: LIDOCAINE HYDROCHLORIDE
     Indication: SPINAL ANAESTHESIA
     Dosage: 0.1 GRAM, QD
     Route: 008
     Dates: start: 20180308, end: 20180308
  3. CYANOCOBALAMIN. [Suspect]
     Active Substance: CYANOCOBALAMIN
     Indication: LUMBAR SPINAL STENOSIS
     Dosage: 0.5 MILLIGRAM, QD
     Route: 008
     Dates: start: 20180308, end: 20180308
  4. PYRIDOXINE [Suspect]
     Active Substance: PYRIDOXINE
     Indication: LUMBAR SPINAL STENOSIS
     Dosage: 0.1 GRAM, QD
     Route: 008
     Dates: start: 20180308, end: 20180308

REACTIONS (1)
  - Anaphylactic shock [Recovered/Resolved]

NARRATIVE: CASE EVENT DATE: 20180308
